FAERS Safety Report 13899461 (Version 2)
Quarter: 2018Q3

REPORT INFORMATION
  Report Type: Spontaneous
  Country: JP (occurrence: JP)
  Receive Date: 20170824
  Receipt Date: 20180709
  Transmission Date: 20181010
  Serious: Yes (Hospitalization, Other)
  Sender: FDA-Public Use
  Company Number: JP-LUPIN EUROPE LIMITED-2017-04744

PATIENT
  Age: 73 Year
  Sex: Male

DRUGS (6)
  1. BENIDIPINE [Interacting]
     Active Substance: BENIDIPINE
     Indication: PRODUCT USED FOR UNKNOWN INDICATION
     Dosage: 2 MG, QD
     Route: 065
  2. CARPERITIDE [Concomitant]
     Active Substance: CARPERITIDE
     Indication: URINE ABNORMALITY
     Dosage: UNK
     Route: 041
  3. QUETIAPINE. [Suspect]
     Active Substance: QUETIAPINE
     Indication: DELIRIUM
     Dosage: 50 MG, QD
     Route: 065
  4. TOLVAPTAN [Interacting]
     Active Substance: TOLVAPTAN
     Indication: ACUTE KIDNEY INJURY
     Dosage: 7.5 MG, QD
     Route: 065
  5. QUETIAPINE. [Interacting]
     Active Substance: QUETIAPINE
     Indication: MENTAL IMPAIRMENT
     Dosage: 150 MG, QD
     Route: 065
  6. CEFEPIME [Concomitant]
     Active Substance: CEFEPIME HYDROCHLORIDE
     Indication: ENTEROBACTER INFECTION
     Dosage: UNK, QD
     Route: 065

REACTIONS (7)
  - Drug interaction [Recovering/Resolving]
  - Renal disorder [Recovering/Resolving]
  - Acute kidney injury [Recovering/Resolving]
  - Urine output decreased [Recovering/Resolving]
  - Weight increased [Recovering/Resolving]
  - Nephropathy toxic [Recovering/Resolving]
  - Renal tubular necrosis [Recovering/Resolving]
